FAERS Safety Report 7400265-8 (Version None)
Quarter: 2011Q2

REPORT INFORMATION
  Report Type: 
  Country: None (occurrence: None)
  Receive Date: 20110407
  Receipt Date: 20110328
  Transmission Date: 20111010
  Serious: Yes (Other)
  Sender: FDA-Public Use
  Company Number: GB-ELI_LILLY_AND_COMPANY-GB201103007906

PATIENT
  Age: 13 Year
  Sex: Male

DRUGS (1)
  1. STRATTERA [Suspect]
     Dosage: UNK, UNKNOWN
     Dates: end: 20110404

REACTIONS (2)
  - DEPRESSION [None]
  - SUICIDAL BEHAVIOUR [None]
